FAERS Safety Report 17905875 (Version 1)
Quarter: 2020Q2

REPORT INFORMATION
  Report Type: Spontaneous
  Country: CA (occurrence: CA)
  Receive Date: 20200617
  Receipt Date: 20200617
  Transmission Date: 20200714
  Serious: Yes (Other)
  Sender: FDA-Public Use
  Company Number: CA-TEVA-2020-CA-1788088

PATIENT
  Age: 76 Year
  Sex: Female

DRUGS (40)
  1. ARAVA [Suspect]
     Active Substance: LEFLUNOMIDE
     Indication: PRODUCT USED FOR UNKNOWN INDICATION
     Dosage: 20 MILLIGRAM DAILY;
     Route: 065
  2. ENBREL [Suspect]
     Active Substance: ETANERCEPT
     Indication: RHEUMATOID ARTHRITIS
     Route: 065
  3. HYDROXYCHLOROQUINE SULFATE. [Suspect]
     Active Substance: HYDROXYCHLOROQUINE SULFATE
     Dosage: 400 MILLIGRAM DAILY;
     Route: 065
  4. HYDROXYCHLOROQUINE SULFATE. [Suspect]
     Active Substance: HYDROXYCHLOROQUINE SULFATE
     Route: 065
  5. HYDROMORPHONE [Concomitant]
     Active Substance: HYDROMORPHONE
  6. LOPERAMIDE [Concomitant]
     Active Substance: LOPERAMIDE
  7. OMNARIS [Concomitant]
     Active Substance: CICLESONIDE
     Route: 065
  8. OXYNEO [Concomitant]
     Active Substance: OXYCODONE
     Route: 065
  9. PANTOLOC [PANTOPRAZOLE] [Concomitant]
     Active Substance: PANTOPRAZOLE SODIUM
     Route: 065
  10. REMICADE [Suspect]
     Active Substance: INFLIXIMAB
     Indication: RHEUMATOID ARTHRITIS
     Route: 065
  11. DESOXIMETASONE. [Concomitant]
     Active Substance: DESOXIMETASONE
     Route: 065
  12. VAGIFEM [Concomitant]
     Active Substance: ESTRADIOL
  13. ACTEMRA [Suspect]
     Active Substance: TOCILIZUMAB
     Indication: RHEUMATOID ARTHRITIS
     Route: 065
  14. SODIUM AUROTHIOMALATE [Suspect]
     Active Substance: GOLD SODIUM THIOMALATE
     Indication: PRODUCT USED FOR UNKNOWN INDICATION
     Route: 030
  15. DARIFENACIN. [Concomitant]
     Active Substance: DARIFENACIN
     Route: 065
  16. DESOXIMETASONE. [Concomitant]
     Active Substance: DESOXIMETASONE
     Route: 065
  17. KENALOG [Concomitant]
     Active Substance: TRIAMCINOLONE ACETONIDE
     Route: 065
  18. RESTASIS [Concomitant]
     Active Substance: CYCLOSPORINE
     Route: 065
  19. HUMIRA [Suspect]
     Active Substance: ADALIMUMAB
     Indication: RHEUMATOID ARTHRITIS
     Route: 065
  20. ANAKINRA [Concomitant]
     Active Substance: ANAKINRA
     Route: 065
  21. BENADRYL [Concomitant]
     Active Substance: DIPHENHYDRAMINE HYDROCHLORIDE
  22. URISPAS [Concomitant]
     Active Substance: FLAVOXATE HYDROCHLORIDE
     Route: 065
  23. XELJANZ [Suspect]
     Active Substance: TOFACITINIB CITRATE
     Indication: PRODUCT USED FOR UNKNOWN INDICATION
     Route: 065
  24. ACETAMINOPHEN. [Concomitant]
     Active Substance: ACETAMINOPHEN
  25. ATIVAN [Concomitant]
     Active Substance: LORAZEPAM
  26. KADIAN [Concomitant]
     Active Substance: MORPHINE SULFATE
     Route: 065
  27. NORFLEX [Concomitant]
     Active Substance: ORPHENADRINE CITRATE
  28. SYNTHROID [Concomitant]
     Active Substance: LEVOTHYROXINE SODIUM
  29. METHOTREXATE. [Suspect]
     Active Substance: METHOTREXATE
     Indication: RHEUMATOID ARTHRITIS
     Route: 065
  30. HYDROXYCHLOROQUINE SULFATE. [Suspect]
     Active Substance: HYDROXYCHLOROQUINE SULFATE
     Indication: RHEUMATOID ARTHRITIS
     Route: 065
  31. ORENCIA [Suspect]
     Active Substance: ABATACEPT
     Indication: RHEUMATOID ARTHRITIS
     Route: 065
  32. ORENCIA [Suspect]
     Active Substance: ABATACEPT
     Indication: PRODUCT USED FOR UNKNOWN INDICATION
  33. CODEINE [Concomitant]
     Active Substance: CODEINE
  34. LASIX [Concomitant]
     Active Substance: FUROSEMIDE
  35. PANTOPRAZOLE [Concomitant]
     Active Substance: PANTOPRAZOLE
  36. TRIMETHOPRIM. [Concomitant]
     Active Substance: TRIMETHOPRIM
  37. ORPHENADRINE CITRATE. [Concomitant]
     Active Substance: ORPHENADRINE CITRATE
  38. RITUXIMAB. [Concomitant]
     Active Substance: RITUXIMAB
     Route: 041
  39. DARIFENACIN. [Concomitant]
     Active Substance: DARIFENACIN
     Route: 065
  40. DILAUDID [Concomitant]
     Active Substance: HYDROMORPHONE HYDROCHLORIDE
     Route: 065

REACTIONS (19)
  - Anaemia [Unknown]
  - Drug ineffective [Unknown]
  - Infection [Unknown]
  - Peripheral swelling [Unknown]
  - Product use issue [Unknown]
  - Arthralgia [Unknown]
  - Joint swelling [Unknown]
  - Pneumonia viral [Unknown]
  - Blood cholesterol increased [Unknown]
  - Drug hypersensitivity [Unknown]
  - Liver function test abnormal [Unknown]
  - Oral pain [Unknown]
  - Soft tissue disorder [Unknown]
  - Synovitis [Unknown]
  - Herpes zoster [Unknown]
  - Therapeutic product effect incomplete [Unknown]
  - Fibromyalgia [Unknown]
  - Arthritis [Unknown]
  - Leukopenia [Unknown]
